FAERS Safety Report 16849472 (Version 1)
Quarter: 2019Q3

REPORT INFORMATION
  Report Type: Spontaneous
  Country: JP (occurrence: JP)
  Receive Date: 20190925
  Receipt Date: 20190925
  Transmission Date: 20191005
  Serious: Yes (Hospitalization)
  Sender: FDA-Public Use
  Company Number: JP-ELI_LILLY_AND_COMPANY-JP201909009044

PATIENT
  Age: 69 Year
  Sex: Female
  Weight: 67 kg

DRUGS (9)
  1. INSULIN LISPRO [Concomitant]
     Active Substance: INSULIN LISPRO
     Dosage: 4 INTERNATIONAL UNIT, TID
  2. INSULIN GLARGINE [Concomitant]
     Active Substance: INSULIN GLARGINE
     Dosage: 14 INTERNATIONAL UNIT, DAILY
  3. PITAVASTATIN CA [Concomitant]
     Active Substance: PITAVASTATIN CALCIUM
     Dosage: 2 MG
  4. ENALAPRIL MALEATE. [Concomitant]
     Active Substance: ENALAPRIL MALEATE
     Dosage: 5 MG
  5. AMLODIPINE [Concomitant]
     Active Substance: AMLODIPINE BESYLATE
     Dosage: 10 MG
  6. DOXAZOSIN MESILATE [Concomitant]
     Active Substance: DOXAZOSIN MESYLATE
     Dosage: 1 MG
  7. TOFOGLIFLOZIN [Concomitant]
     Active Substance: TOFOGLIFLOZIN
     Dosage: 20 MG
  8. TRULICITY [Suspect]
     Active Substance: DULAGLUTIDE
     Indication: TYPE 2 DIABETES MELLITUS
     Dosage: 0.75 MG
     Route: 058
  9. METFORMIN HYDROCHLORIDE. [Concomitant]
     Active Substance: METFORMIN HYDROCHLORIDE
     Dosage: 2000 MG

REACTIONS (1)
  - Pituitary-dependent Cushing^s syndrome [Unknown]
